FAERS Safety Report 5875820-7 (Version None)
Quarter: 2008Q3

REPORT INFORMATION
  Report Type: 
  Country: None (occurrence: None)
  Receive Date: 20080909
  Receipt Date: 20080828
  Transmission Date: 20090109
  Serious: Yes (Other)
  Sender: FDA-Public Use
  Company Number: DE-PFIZER INC-2008060208

PATIENT
  Sex: Female
  Weight: 57 kg

DRUGS (8)
  1. LYRICA [Suspect]
     Indication: PAIN
     Route: 048
     Dates: start: 20080616, end: 20080727
  2. LYRICA [Suspect]
     Indication: INTERVERTEBRAL DISC PROTRUSION
  3. LYRICA [Suspect]
     Indication: MYELOFIBROSIS
  4. LYRICA [Suspect]
     Indication: MUSCLE SPASMS
  5. LYRICA [Suspect]
     Indication: NEUROPATHY PERIPHERAL
  6. TRAMADOL HCL [Concomitant]
     Indication: NECK PAIN
     Route: 048
     Dates: start: 20070601
  7. ACETAMINOPHEN [Concomitant]
     Route: 048
  8. AMITRIPTYLINE HCL [Concomitant]
     Route: 048
     Dates: start: 20080616, end: 20080616

REACTIONS (11)
  - ACTIVITIES OF DAILY LIVING IMPAIRED [None]
  - BALANCE DISORDER [None]
  - DIZZINESS [None]
  - EYE DISORDER [None]
  - EYE PAIN [None]
  - FEELING ABNORMAL [None]
  - FEELING DRUNK [None]
  - SEDATION [None]
  - SOMNOLENCE [None]
  - STRABISMUS [None]
  - VISION BLURRED [None]
